FAERS Safety Report 4571437-5 (Version None)
Quarter: 2005Q1

REPORT INFORMATION
  Report Type: 
  Country: None (occurrence: None)
  Receive Date: 20050207
  Receipt Date: 20050126
  Transmission Date: 20050727
  Serious: Yes (Other)
  Sender: FDA-Public Use
  Company Number: US-JNJFOC-20050106885

PATIENT
  Sex: Male

DRUGS (3)
  1. REMICADE [Suspect]
     Dosage: 2 INFUSIONS
     Route: 042
  2. REMICADE [Suspect]
     Indication: CROHN'S DISEASE
     Route: 042
  3. AZACOL [Concomitant]

REACTIONS (3)
  - COLONIC FISTULA [None]
  - FISTULA [None]
  - INFECTION [None]
